FAERS Safety Report 22863280 (Version 5)
Quarter: 2025Q1

REPORT INFORMATION
  Report Type: Spontaneous
  Country: US (occurrence: US)
  Receive Date: 20230824
  Receipt Date: 20250328
  Transmission Date: 20250409
  Serious: No
  Sender: SANOFI AVENTIS
  Company Number: US-SA-SAC20230822001166

PATIENT
  Age: 77 Year
  Sex: Female

DRUGS (4)
  1. DUPIXENT [Suspect]
     Active Substance: DUPILUMAB
     Indication: Dermatitis
     Dosage: 300 MG, QOW
     Route: 058
  2. IRON [Suspect]
     Active Substance: IRON
  3. TRIAMCINOLONE [Concomitant]
     Active Substance: TRIAMCINOLONE
  4. PEPCID [Concomitant]
     Active Substance: FAMOTIDINE

REACTIONS (21)
  - Hypertension [Not Recovered/Not Resolved]
  - Skin disorder [Unknown]
  - Localised infection [Unknown]
  - Cystitis [Recovered/Resolved]
  - Blister [Not Recovered/Not Resolved]
  - Limb discomfort [Not Recovered/Not Resolved]
  - Vaginal mucosal blistering [Not Recovered/Not Resolved]
  - Constipation [Not Recovered/Not Resolved]
  - Feeling abnormal [Not Recovered/Not Resolved]
  - Sleep disorder due to a general medical condition [Unknown]
  - Dry skin [Unknown]
  - Cystitis [Unknown]
  - Back pain [Unknown]
  - Myalgia [Not Recovered/Not Resolved]
  - Pruritus [Unknown]
  - Dry eye [Unknown]
  - Rash [Unknown]
  - Eye pruritus [Unknown]
  - Arthralgia [Not Recovered/Not Resolved]
  - Product use in unapproved indication [Unknown]
  - Intercepted product storage error [Unknown]

NARRATIVE: CASE EVENT DATE: 20230701
